FAERS Safety Report 13486011 (Version 8)
Quarter: 2023Q2

REPORT INFORMATION
  Report Type: Report from Study
  Country: CA (occurrence: CA)
  Receive Date: 20170426
  Receipt Date: 20230505
  Transmission Date: 20230722
  Serious: Yes (Other)
  Sender: FDA-Public Use
  Company Number: PHHY2015CA103813

PATIENT
  Age: 25 Year
  Sex: Female

DRUGS (4)
  1. SANDOSTATIN LAR DEPOT [Suspect]
     Active Substance: OCTREOTIDE ACETATE
     Indication: Metastatic carcinoid tumour
     Dosage: 30 MG, QMO (ONCE A MONTH)
     Route: 030
     Dates: start: 20150424
  2. SANDOSTATIN LAR DEPOT [Suspect]
     Active Substance: OCTREOTIDE ACETATE
     Dosage: 30 MG, Q3W (EVERY 3 WEEKS)
     Route: 030
     Dates: start: 20150424
  3. SANDOSTATIN LAR DEPOT [Suspect]
     Active Substance: OCTREOTIDE ACETATE
  4. AFINITOR [Suspect]
     Active Substance: EVEROLIMUS
     Indication: Product used for unknown indication
     Dosage: 10 MG, QD
     Route: 048

REACTIONS (39)
  - Seizure [Unknown]
  - Vision blurred [Unknown]
  - Palpitations [Unknown]
  - Nausea [Unknown]
  - Erythema [Unknown]
  - Metastases to breast [Unknown]
  - Malignant neoplasm progression [Unknown]
  - Blood pressure diastolic increased [Unknown]
  - Blood pressure decreased [Unknown]
  - Rhinorrhoea [Unknown]
  - Nasopharyngitis [Unknown]
  - Oropharyngeal pain [Recovered/Resolved]
  - Oropharyngeal pain [Unknown]
  - Cough [Not Recovered/Not Resolved]
  - Nasal congestion [Recovered/Resolved]
  - Nasal congestion [Recovered/Resolved]
  - Pharyngitis [Unknown]
  - Ear infection [Unknown]
  - Fatigue [Unknown]
  - Abdominal pain upper [Recovered/Resolved]
  - Pyrexia [Unknown]
  - Chills [Unknown]
  - Dysphagia [Unknown]
  - Sinus congestion [Unknown]
  - COVID-19 [Recovered/Resolved]
  - Nasal congestion [Unknown]
  - Nasopharyngitis [Unknown]
  - Diarrhoea [Unknown]
  - Nausea [Recovered/Resolved]
  - Headache [Recovered/Resolved]
  - Heart rate decreased [Unknown]
  - Headache [Unknown]
  - Dizziness [Recovered/Resolved]
  - Alopecia [Recovering/Resolving]
  - Abdominal pain [Unknown]
  - Syringe issue [Unknown]
  - Injection site haemorrhage [Unknown]
  - Injection site pain [Unknown]
  - Inappropriate schedule of product administration [Unknown]

NARRATIVE: CASE EVENT DATE: 20150101
